FAERS Safety Report 22219876 (Version 1)
Quarter: 2023Q2

REPORT INFORMATION
  Report Type: Spontaneous
  Country: US (occurrence: US)
  Receive Date: 20230417
  Receipt Date: 20230417
  Transmission Date: 20230722
  Serious: Yes (Other)
  Sender: FDA-Public Use
  Company Number: US-BRACCO-2023US01534

PATIENT
  Age: 56 Year
  Sex: Male

DRUGS (3)
  1. LUMASON [Suspect]
     Active Substance: SULFUR HEXAFLUORIDE
     Indication: Echocardiogram
     Dosage: UNK, SINGLE
     Dates: start: 20230327, end: 20230327
  2. LUMASON [Suspect]
     Active Substance: SULFUR HEXAFLUORIDE
     Indication: Echocardiogram
     Dosage: UNK, SINGLE
     Dates: start: 20230327, end: 20230327
  3. LUMASON [Suspect]
     Active Substance: SULFUR HEXAFLUORIDE
     Indication: Echocardiogram
     Dosage: UNK, SINGLE
     Dates: start: 20230327, end: 20230327

REACTIONS (5)
  - Unresponsive to stimuli [Recovered/Resolved]
  - Ventricular tachycardia [Recovered/Resolved]
  - Hypotension [Recovered/Resolved]
  - Hyperhidrosis [Recovered/Resolved]
  - Agonal respiration [Recovered/Resolved]

NARRATIVE: CASE EVENT DATE: 20230327
